FAERS Safety Report 6557223-5 (Version None)
Quarter: 2010Q1

REPORT INFORMATION
  Report Type: 
  Country: None (occurrence: None)
  Receive Date: 20100127
  Receipt Date: 20100127
  Transmission Date: 20100710
  Serious: Yes (Hospitalization)
  Sender: FDA-Public Use
  Company Number: None

PATIENT
  Age: 52 Year
  Sex: Male
  Weight: 59.8748 kg

DRUGS (1)
  1. NALTROXONE 50 MG  50 MG. TABLET UNKNOWN [Suspect]
     Dosage: QTY 30 ONCE DAILY PO
     Route: 048
     Dates: start: 20100116, end: 20100116

REACTIONS (10)
  - AMNESIA [None]
  - ANXIETY [None]
  - ASTHENIA [None]
  - FEELING ABNORMAL [None]
  - HEART RATE INCREASED [None]
  - HYPERHIDROSIS [None]
  - MALAISE [None]
  - MOVEMENT DISORDER [None]
  - RESPIRATORY RATE INCREASED [None]
  - VOMITING [None]
